FAERS Safety Report 7352439-2 (Version None)
Quarter: 2011Q1

REPORT INFORMATION
  Report Type: 
  Country: None (occurrence: None)
  Receive Date: 20110301
  Receipt Date: 20101102
  Transmission Date: 20110831
  Serious: Yes (Hospitalization)
  Sender: FDA-Public Use
  Company Number: 253753USA

PATIENT
  Age: 51 Year
  Sex: Male

DRUGS (1)
  1. MIRTAZAPINE [Suspect]
     Indication: IRRITABLE BOWEL SYNDROME
     Dosage: 15 MG (15 MG, 1 IN 24 HR), ORAL
     Route: 048
     Dates: start: 20090401

REACTIONS (6)
  - CHEST PAIN [None]
  - ANXIETY [None]
  - NAUSEA [None]
  - MENTAL DISORDER [None]
  - BURNING SENSATION [None]
  - DIARRHOEA [None]
